FAERS Safety Report 7259997-7 (Version None)
Quarter: 2011Q1

REPORT INFORMATION
  Report Type: 
  Country: None (occurrence: None)
  Receive Date: 20110130
  Receipt Date: 20101018
  Transmission Date: 20110831
  Serious: No
  Sender: FDA-Public Use
  Company Number: US-ABBOTT-10P-163-0679134-00

PATIENT
  Age: 26 Year
  Sex: Female

DRUGS (6)
  1. PROAIR HFA [Concomitant]
     Indication: ASTHMA
  2. HUMIRA [Suspect]
     Dates: start: 20100501
  3. PRENATAL VITAMINS [Concomitant]
     Indication: BLOOD CHOLESTEROL DECREASED
     Dosage: DAILY
     Route: 048
  4. LASIX [Concomitant]
     Indication: FLUID RETENTION
     Route: 048
  5. HUMIRA [Concomitant]
     Indication: CROHN'S DISEASE
     Route: 058
  6. HUMIRA [Suspect]
     Indication: CROHN'S DISEASE
     Dates: start: 20081001

REACTIONS (1)
  - INJECTION SITE PAIN [None]
